FAERS Safety Report 6535403-2 (Version None)
Quarter: 2010Q1

REPORT INFORMATION
  Report Type: 
  Country: None (occurrence: None)
  Receive Date: 20100113
  Receipt Date: 20100106
  Transmission Date: 20100710
  Serious: Yes (Death)
  Sender: FDA-Public Use
  Company Number: TW-JNJFOC-20100101945

PATIENT
  Age: 80 Year

DRUGS (3)
  1. ULTRACET [Suspect]
     Indication: ANALGESIC THERAPY
     Route: 048
  2. ULTRACET [Suspect]
     Route: 048
  3. KETOPROFEN [Concomitant]
     Indication: ANALGESIC THERAPY
     Route: 050

REACTIONS (2)
  - DEATH [None]
  - VOMITING [None]
